FAERS Safety Report 17725684 (Version 1)
Quarter: 2020Q2

REPORT INFORMATION
  Report Type: Spontaneous
  Country: US (occurrence: US)
  Receive Date: 20200429
  Receipt Date: 20200429
  Transmission Date: 20200714
  Serious: No
  Sender: FDA-Public Use
  Company Number: US-TEVA-2020-US-1231271

PATIENT
  Sex: Female

DRUGS (1)
  1. TORSEMIDE. [Suspect]
     Active Substance: TORSEMIDE
     Indication: HYPERTENSION
     Route: 065

REACTIONS (4)
  - Eye pain [Unknown]
  - Dizziness [Unknown]
  - Depressed mood [Unknown]
  - Vision blurred [Unknown]
